FAERS Safety Report 12255564 (Version 1)
Quarter: 2016Q2

REPORT INFORMATION
  Report Type: Spontaneous
  Country: US (occurrence: None)
  Receive Date: 20160411
  Receipt Date: 20160411
  Transmission Date: 20160815
  Serious: Yes (Other)
  Sender: FDA-Public Use
  Company Number: None

PATIENT
  Age: 69 Year
  Sex: Female
  Weight: 70.94 kg

DRUGS (2)
  1. ALPRAZOLAM. [Suspect]
     Active Substance: ALPRAZOLAM
     Indication: AGORAPHOBIA
     Dosage: 0.5MG 2 AT H.S + 1 UP TO T.I.D PRN P.O
     Route: 048
     Dates: start: 20110716, end: 20110725
  2. ALPRAZOLAM. [Suspect]
     Active Substance: ALPRAZOLAM
     Indication: PANIC REACTION
     Dosage: 0.5MG 2 AT H.S + 1 UP TO T.I.D PRN P.O
     Route: 048
     Dates: start: 20110716, end: 20110725

REACTIONS (5)
  - Initial insomnia [None]
  - Anxiety [None]
  - Muscle tightness [None]
  - Tremor [None]
  - Feeling jittery [None]

NARRATIVE: CASE EVENT DATE: 20110716
